FAERS Safety Report 23084704 (Version 1)
Quarter: 2023Q4

REPORT INFORMATION
  Report Type: Report from Study
  Country: CN (occurrence: CN)
  Receive Date: 20231019
  Receipt Date: 20231019
  Transmission Date: 20240109
  Serious: Yes (Life-Threatening, Hospitalization)
  Sender: FDA-Public Use
  Company Number: CN-PFIZER INC-PV202300170082

PATIENT
  Age: 52 Year
  Sex: Female

DRUGS (83)
  1. PACLITAXEL [Suspect]
     Active Substance: PACLITAXEL
     Indication: Triple negative breast cancer
     Dosage: 116 MG, WEEKLY
     Route: 042
     Dates: start: 20221216, end: 20221216
  2. PACLITAXEL [Suspect]
     Active Substance: PACLITAXEL
     Dosage: 116 MG, WEEKLY
     Route: 042
     Dates: start: 20221227, end: 20221227
  3. PACLITAXEL [Suspect]
     Active Substance: PACLITAXEL
     Dosage: 116 MG, WEEKLY
     Route: 042
     Dates: start: 20230112, end: 20230112
  4. PACLITAXEL [Suspect]
     Active Substance: PACLITAXEL
     Dosage: 116 MG, WEEKLY
     Route: 042
     Dates: start: 20230131, end: 20230131
  5. PACLITAXEL [Suspect]
     Active Substance: PACLITAXEL
     Dosage: 116 MG, WEEKLY
     Route: 042
     Dates: start: 20230207, end: 20230207
  6. PACLITAXEL [Suspect]
     Active Substance: PACLITAXEL
     Dosage: 116 MG, WEEKLY
     Route: 042
     Dates: start: 20230216, end: 20230216
  7. PACLITAXEL [Suspect]
     Active Substance: PACLITAXEL
     Dosage: 116 MG, WEEKLY
     Route: 042
     Dates: start: 20230302, end: 20230302
  8. PACLITAXEL [Suspect]
     Active Substance: PACLITAXEL
     Dosage: 116 MG, WEEKLY
     Route: 042
     Dates: start: 20230310, end: 20230310
  9. PACLITAXEL [Suspect]
     Active Substance: PACLITAXEL
     Dosage: 116 MG, WEEKLY
     Route: 042
     Dates: start: 20230317, end: 20230317
  10. PACLITAXEL [Suspect]
     Active Substance: PACLITAXEL
     Dosage: 116 MG, WEEKLY
     Route: 042
     Dates: start: 20230329, end: 20230329
  11. PACLITAXEL [Suspect]
     Active Substance: PACLITAXEL
     Dosage: 116 MG, WEEKLY
     Route: 042
     Dates: start: 20230407, end: 20230407
  12. PACLITAXEL [Suspect]
     Active Substance: PACLITAXEL
     Dosage: 116 MG, WEEKLY
     Route: 042
     Dates: start: 20230414, end: 20230414
  13. PACLITAXEL [Suspect]
     Active Substance: PACLITAXEL
     Dosage: 116 MG, WEEKLY
     Route: 042
     Dates: start: 20230427, end: 20230427
  14. PACLITAXEL [Suspect]
     Active Substance: PACLITAXEL
     Dosage: 116 MG, WEEKLY
     Route: 042
     Dates: start: 20230505, end: 20230505
  15. PACLITAXEL [Suspect]
     Active Substance: PACLITAXEL
     Dosage: 116 MG, WEEKLY
     Route: 042
     Dates: start: 20230512, end: 20230512
  16. PACLITAXEL [Suspect]
     Active Substance: PACLITAXEL
     Dosage: 116 MG, WEEKLY
     Route: 042
     Dates: start: 20230525, end: 20230525
  17. PACLITAXEL [Suspect]
     Active Substance: PACLITAXEL
     Dosage: 116 MG, WEEKLY
     Route: 042
     Dates: start: 20230601, end: 20230601
  18. PACLITAXEL [Suspect]
     Active Substance: PACLITAXEL
     Dosage: 116 MG, WEEKLY
     Route: 042
     Dates: start: 20230608, end: 20230608
  19. PACLITAXEL [Suspect]
     Active Substance: PACLITAXEL
     Dosage: 116 MG, WEEKLY
     Route: 042
     Dates: start: 20230621, end: 20230621
  20. PACLITAXEL [Suspect]
     Active Substance: PACLITAXEL
     Dosage: 116 MG, WEEKLY
     Route: 042
     Dates: start: 20230628, end: 20230628
  21. PACLITAXEL [Suspect]
     Active Substance: PACLITAXEL
     Dosage: 116 MG, WEEKLY
     Route: 042
     Dates: start: 20230705, end: 20230705
  22. PACLITAXEL [Suspect]
     Active Substance: PACLITAXEL
     Dosage: 93 MG, WEEKLY
     Route: 042
     Dates: start: 20230719, end: 20230719
  23. PACLITAXEL [Suspect]
     Active Substance: PACLITAXEL
     Dosage: 93 MG, WEEKLY
     Route: 042
     Dates: start: 20230726, end: 20230726
  24. PACLITAXEL [Suspect]
     Active Substance: PACLITAXEL
     Dosage: 74 MG, WEEKLY
     Route: 042
     Dates: start: 20230809, end: 20230809
  25. PACLITAXEL [Suspect]
     Active Substance: PACLITAXEL
     Dosage: 74 MG, WEEKLY
     Route: 042
     Dates: start: 20230823, end: 20230823
  26. PACLITAXEL [Suspect]
     Active Substance: PACLITAXEL
     Dosage: 74 MG, WEEKLY
     Route: 042
     Dates: start: 20230830, end: 20230830
  27. INVESTIGATIONAL PRODUCT [Suspect]
     Active Substance: INVESTIGATIONAL PRODUCT
     Indication: Triple negative breast cancer
     Dosage: 400 MG, 2X/DAY, TABLET
     Route: 048
     Dates: start: 20221217, end: 20221220
  28. INVESTIGATIONAL PRODUCT [Suspect]
     Active Substance: INVESTIGATIONAL PRODUCT
     Dosage: 400 MG, 2X/DAY, TABLET
     Route: 048
     Dates: start: 20221228, end: 20221231
  29. INVESTIGATIONAL PRODUCT [Suspect]
     Active Substance: INVESTIGATIONAL PRODUCT
     Dosage: 400 MG, 2X/DAY, TABLET
     Route: 048
     Dates: start: 20230113, end: 20230116
  30. INVESTIGATIONAL PRODUCT [Suspect]
     Active Substance: INVESTIGATIONAL PRODUCT
     Dosage: 400 MG, 2X/DAY, TABLET
     Route: 048
     Dates: start: 20230201, end: 20230204
  31. INVESTIGATIONAL PRODUCT [Suspect]
     Active Substance: INVESTIGATIONAL PRODUCT
     Dosage: 400 MG, 2X/DAY, TABLET
     Route: 048
     Dates: start: 20230208, end: 20230211
  32. INVESTIGATIONAL PRODUCT [Suspect]
     Active Substance: INVESTIGATIONAL PRODUCT
     Dosage: 400 MG, 2X/DAY, TABLET
     Route: 048
     Dates: start: 20230217, end: 20230221
  33. INVESTIGATIONAL PRODUCT [Suspect]
     Active Substance: INVESTIGATIONAL PRODUCT
     Dosage: 400 MG, 2X/DAY, TABLET
     Route: 048
     Dates: start: 20230303, end: 20230306
  34. INVESTIGATIONAL PRODUCT [Suspect]
     Active Substance: INVESTIGATIONAL PRODUCT
     Dosage: 400 MG, 2X/DAY, TABLET
     Route: 048
     Dates: start: 20230311, end: 20230314
  35. INVESTIGATIONAL PRODUCT [Suspect]
     Active Substance: INVESTIGATIONAL PRODUCT
     Dosage: 400 MG, 2X/DAY, TABLET
     Route: 048
     Dates: start: 20230318, end: 20230321
  36. INVESTIGATIONAL PRODUCT [Suspect]
     Active Substance: INVESTIGATIONAL PRODUCT
     Dosage: 400 MG, 2X/DAY, TABLET
     Route: 048
     Dates: start: 20230330, end: 20230402
  37. INVESTIGATIONAL PRODUCT [Suspect]
     Active Substance: INVESTIGATIONAL PRODUCT
     Dosage: 400 MG, 2X/DAY, TABLET
     Route: 048
     Dates: start: 20230408, end: 20230411
  38. INVESTIGATIONAL PRODUCT [Suspect]
     Active Substance: INVESTIGATIONAL PRODUCT
     Dosage: 400 MG, 2X/DAY, TABLET
     Route: 048
     Dates: start: 20230415, end: 20230418
  39. INVESTIGATIONAL PRODUCT [Suspect]
     Active Substance: INVESTIGATIONAL PRODUCT
     Dosage: 400 MG, 2X/DAY, TABLET
     Route: 048
     Dates: start: 20230428, end: 20230501
  40. INVESTIGATIONAL PRODUCT [Suspect]
     Active Substance: INVESTIGATIONAL PRODUCT
     Dosage: 400 MG, 2X/DAY, TABLET
     Route: 048
     Dates: start: 20230506, end: 20230509
  41. INVESTIGATIONAL PRODUCT [Suspect]
     Active Substance: INVESTIGATIONAL PRODUCT
     Dosage: 400 MG, 2X/DAY, TABLET
     Route: 048
     Dates: start: 20230513, end: 20230516
  42. INVESTIGATIONAL PRODUCT [Suspect]
     Active Substance: INVESTIGATIONAL PRODUCT
     Dosage: 400 MG, 2X/DAY, TABLET
     Route: 048
     Dates: start: 20230526, end: 20230529
  43. INVESTIGATIONAL PRODUCT [Suspect]
     Active Substance: INVESTIGATIONAL PRODUCT
     Dosage: 400 MG, 2X/DAY, TABLET
     Route: 048
     Dates: start: 20230609, end: 20230612
  44. INVESTIGATIONAL PRODUCT [Suspect]
     Active Substance: INVESTIGATIONAL PRODUCT
     Dosage: 400 MG, 2X/DAY, TABLET
     Route: 048
     Dates: start: 20230622, end: 20230625
  45. INVESTIGATIONAL PRODUCT [Suspect]
     Active Substance: INVESTIGATIONAL PRODUCT
     Dosage: 400 MG, 2X/DAY, TABLET
     Route: 048
     Dates: start: 20230629, end: 20230702
  46. INVESTIGATIONAL PRODUCT [Suspect]
     Active Substance: INVESTIGATIONAL PRODUCT
     Dosage: 400 MG, 2X/DAY, TABLET
     Route: 048
     Dates: start: 20230702, end: 20230705
  47. INVESTIGATIONAL PRODUCT [Suspect]
     Active Substance: INVESTIGATIONAL PRODUCT
     Dosage: 400 MG, 2X/DAY, TABLET
     Route: 048
     Dates: start: 20230706, end: 20230709
  48. INVESTIGATIONAL PRODUCT [Suspect]
     Active Substance: INVESTIGATIONAL PRODUCT
     Dosage: 400 MG, 2X/DAY, TABLET
     Route: 048
     Dates: start: 20230720, end: 20230723
  49. INVESTIGATIONAL PRODUCT [Suspect]
     Active Substance: INVESTIGATIONAL PRODUCT
     Dosage: 400 MG, 2X/DAY, TABLET
     Route: 048
     Dates: start: 20230728, end: 20230728
  50. INVESTIGATIONAL PRODUCT [Suspect]
     Active Substance: INVESTIGATIONAL PRODUCT
     Dosage: 400 MG, 2X/DAY, TABLET
     Route: 048
     Dates: start: 20230729, end: 20230729
  51. INVESTIGATIONAL PRODUCT [Suspect]
     Active Substance: INVESTIGATIONAL PRODUCT
     Dosage: 400 MG, 2X/DAY, TABLET
     Route: 048
     Dates: start: 20230810, end: 20230813
  52. INVESTIGATIONAL PRODUCT [Suspect]
     Active Substance: INVESTIGATIONAL PRODUCT
     Dosage: 400 MG, 2X/DAY, TABLET
     Route: 048
     Dates: start: 20230824, end: 20230827
  53. DEXAMETHASONE SODIUM PHOSPHATE [Concomitant]
     Active Substance: DEXAMETHASONE SODIUM PHOSPHATE
     Indication: Premedication
     Dosage: UNK
     Route: 042
     Dates: start: 20230705, end: 20230705
  54. DEXAMETHASONE SODIUM PHOSPHATE [Concomitant]
     Active Substance: DEXAMETHASONE SODIUM PHOSPHATE
     Dosage: UNK
     Route: 042
     Dates: start: 20230719, end: 20230719
  55. DEXAMETHASONE SODIUM PHOSPHATE [Concomitant]
     Active Substance: DEXAMETHASONE SODIUM PHOSPHATE
     Dosage: UNK
     Route: 042
     Dates: start: 20230726, end: 20230726
  56. DIPHENHYDRAMINE HYDROCHLORIDE [Concomitant]
     Active Substance: DIPHENHYDRAMINE HYDROCHLORIDE
     Indication: Premedication
     Dosage: UNK
     Route: 030
     Dates: start: 20230705, end: 20230705
  57. DIPHENHYDRAMINE HYDROCHLORIDE [Concomitant]
     Active Substance: DIPHENHYDRAMINE HYDROCHLORIDE
     Dosage: UNK
     Route: 030
     Dates: start: 20230719, end: 20230719
  58. DIPHENHYDRAMINE HYDROCHLORIDE [Concomitant]
     Active Substance: DIPHENHYDRAMINE HYDROCHLORIDE
     Dosage: UNK
     Route: 030
     Dates: start: 20230726, end: 20230726
  59. PALONOSETRON HYDROCHLORIDE [Concomitant]
     Active Substance: PALONOSETRON HYDROCHLORIDE
     Indication: Premedication
     Dosage: UNK
     Route: 042
     Dates: start: 20230705, end: 20230705
  60. PALONOSETRON HYDROCHLORIDE [Concomitant]
     Active Substance: PALONOSETRON HYDROCHLORIDE
     Dosage: UNK
     Route: 042
     Dates: start: 20230719, end: 20230719
  61. PALONOSETRON HYDROCHLORIDE [Concomitant]
     Active Substance: PALONOSETRON HYDROCHLORIDE
     Dosage: UNK
     Route: 042
     Dates: start: 20230726, end: 20230726
  62. LOPERAMIDE [Concomitant]
     Active Substance: LOPERAMIDE
     Indication: Diarrhoea
     Dosage: 4 MG, DAILY
     Route: 048
     Dates: start: 20230630, end: 20230702
  63. LOPERAMIDE [Concomitant]
     Active Substance: LOPERAMIDE
     Dosage: 4 MG, DAILY
     Route: 048
     Dates: start: 20230706, end: 20230709
  64. GRANULOCYTE COLONY-STIMULATING FACTOR NOS [Concomitant]
     Active Substance: GRANULOCYTE COLONY-STIMULATING FACTOR NOS
     Indication: White blood cell count decreased
     Dosage: 200 UG, DAILY
     Route: 058
     Dates: start: 20230701, end: 20230701
  65. GRANULOCYTE COLONY-STIMULATING FACTOR NOS [Concomitant]
     Active Substance: GRANULOCYTE COLONY-STIMULATING FACTOR NOS
     Indication: Neutrophil count decreased
     Dosage: 200 UG, DAILY
     Route: 058
     Dates: start: 20230709, end: 20230709
  66. GRANULOCYTE COLONY-STIMULATING FACTOR NOS [Concomitant]
     Active Substance: GRANULOCYTE COLONY-STIMULATING FACTOR NOS
     Dosage: 200 UG, DAILY
     Route: 058
     Dates: start: 20230714, end: 20230714
  67. GRANULOCYTE COLONY-STIMULATING FACTOR NOS [Concomitant]
     Active Substance: GRANULOCYTE COLONY-STIMULATING FACTOR NOS
     Dosage: 100 UG, DAILY
     Route: 058
     Dates: start: 20230718, end: 20230718
  68. GRANULOCYTE COLONY-STIMULATING FACTOR NOS [Concomitant]
     Active Substance: GRANULOCYTE COLONY-STIMULATING FACTOR NOS
     Dosage: 100 UG, DAILY
     Route: 058
     Dates: start: 20230723, end: 20230723
  69. GRANULOCYTE COLONY-STIMULATING FACTOR NOS [Concomitant]
     Active Substance: GRANULOCYTE COLONY-STIMULATING FACTOR NOS
     Dosage: 100 UG, DAILY
     Route: 058
     Dates: start: 20230725, end: 20230725
  70. GRANULOCYTE COLONY-STIMULATING FACTOR NOS [Concomitant]
     Active Substance: GRANULOCYTE COLONY-STIMULATING FACTOR NOS
     Dosage: 200 UG, DAILY
     Route: 058
     Dates: start: 20230729, end: 20230729
  71. GRANULOCYTE COLONY-STIMULATING FACTOR NOS [Concomitant]
     Active Substance: GRANULOCYTE COLONY-STIMULATING FACTOR NOS
     Dosage: 300 UG, DAILY
     Route: 058
     Dates: start: 20230729, end: 20230801
  72. ERYTHROPOIETIN [Concomitant]
     Active Substance: ERYTHROPOIETIN
     Indication: Anaemia
     Dosage: 1000 IU, ALTERNATE DAY
     Route: 058
     Dates: start: 20230627, end: 20230701
  73. ERYTHROPOIETIN [Concomitant]
     Active Substance: ERYTHROPOIETIN
     Dosage: 1000 IU, DAILY
     Route: 058
     Dates: start: 20230704, end: 20230704
  74. ERYTHROPOIETIN [Concomitant]
     Active Substance: ERYTHROPOIETIN
     Dosage: 1000 IU, DAILY
     Route: 058
     Dates: start: 20230718, end: 20230718
  75. ERYTHROPOIETIN [Concomitant]
     Active Substance: ERYTHROPOIETIN
     Dosage: 1000 IU, ALTERNATE DAY
     Route: 058
     Dates: start: 20230725, end: 20230729
  76. ERYTHROPOIETIN [Concomitant]
     Active Substance: ERYTHROPOIETIN
     Dosage: 36000 IU, DAILY
     Route: 058
     Dates: start: 20230719, end: 20230719
  77. FERRIC POLYSACCHARIDE COMPLEX [Concomitant]
     Active Substance: FERRIC POLYSACCHARIDE COMPLEX
     Indication: Anaemia
     Dosage: 150 MG, DAILY
     Route: 048
     Dates: start: 20230504
  78. FERRIC POLYSACCHARIDE COMPLEX [Concomitant]
     Active Substance: FERRIC POLYSACCHARIDE COMPLEX
     Dosage: 150 MG, DAILY
     Route: 048
     Dates: start: 20230504, end: 20230802
  79. SHENG XUE BAO [Concomitant]
     Indication: Anaemia
     Dosage: 15 ML, 3X/DAY
     Route: 048
     Dates: start: 20230703, end: 20230802
  80. INTERFERON [Concomitant]
     Active Substance: INTERFERON
     Indication: Diarrhoea
     Dosage: 400 MG, 2X/DAY
     Route: 048
  81. ESOMEPRAZOLE SODIUM [Concomitant]
     Active Substance: ESOMEPRAZOLE SODIUM
     Indication: Prophylaxis
     Dosage: 40 MG, DAILY
     Route: 042
     Dates: start: 20230729, end: 20230802
  82. VITAMIN C [Concomitant]
     Active Substance: ASCORBIC ACID
     Indication: Infusion
     Dosage: 2 G, DAILY
     Route: 042
     Dates: start: 20230729, end: 20230802
  83. VITAMIN B6 [Concomitant]
     Active Substance: PYRIDOXINE HYDROCHLORIDE
     Indication: Infusion
     Dosage: 2 G, DAILY
     Route: 042
     Dates: start: 20230729, end: 20230802

REACTIONS (2)
  - White blood cell count decreased [Recovered/Resolved]
  - Neutrophil count decreased [Recovered/Resolved]

NARRATIVE: CASE EVENT DATE: 20230723
